FAERS Safety Report 9333385 (Version 3)
Quarter: 2013Q4

REPORT INFORMATION
  Report Type: Spontaneous
  Country: DE (occurrence: DE)
  Receive Date: 20130606
  Receipt Date: 20131011
  Transmission Date: 20140711
  Serious: Yes (Hospitalization, Other)
  Sender: FDA-Public Use
  Company Number: DE-BRISTOL-MYERS SQUIBB COMPANY-18968933

PATIENT
  Age: 53 Year
  Sex: Male
  Weight: 103 kg

DRUGS (1)
  1. IPILIMUMAB [Suspect]
     Indication: METASTATIC MALIGNANT MELANOMA
     Dosage: 20MAR13 ALSO?2 ADMINISTRATION
     Route: 042
     Dates: start: 20130227

REACTIONS (4)
  - Erythema nodosum [Recovering/Resolving]
  - Diabetes insipidus [Recovering/Resolving]
  - Hypophysitis [Recovering/Resolving]
  - Autoimmune hepatitis [Recovering/Resolving]
